FAERS Safety Report 8333101-6 (Version None)
Quarter: 2012Q2

REPORT INFORMATION
  Report Type: 
  Country: None (occurrence: None)
  Receive Date: 20120503
  Receipt Date: 20120501
  Transmission Date: 20120825
  Serious: Yes (Death)
  Sender: FDA-Public Use
  Company Number: PHHY2012NL036901

PATIENT
  Sex: Female

DRUGS (3)
  1. ZOMETA [Suspect]
     Dosage: 4 MG/100ML, 1X PER 28 DAYS
     Dates: start: 20120412
  2. ZOMETA [Suspect]
     Indication: BREAST CANCER METASTATIC
     Dosage: 4 MG/100ML, 1X PER 28 DAYS
     Dates: start: 20110331
  3. ZOMETA [Suspect]
     Dosage: 4 MG/100ML, 1X PER 28 DAYS
     Dates: start: 20120315

REACTIONS (1)
  - TERMINAL STATE [None]
